FAERS Safety Report 7852406-6 (Version None)
Quarter: 2011Q4

REPORT INFORMATION
  Report Type: 
  Country: None (occurrence: None)
  Receive Date: 20111026
  Receipt Date: 20111019
  Transmission Date: 20120403
  Serious: Yes (Other)
  Sender: FDA-Public Use
  Company Number: US-AMGEN-QUU422769

PATIENT
  Age: 36 Year
  Sex: Female

DRUGS (8)
  1. CETIRIZINE HCL [Concomitant]
     Dosage: UNK UNK, UNK
  2. FOLIC ACID [Concomitant]
     Dosage: UNK UNK, UNK
  3. PREDNISONE [Concomitant]
     Dosage: UNK UNK, UNK
  4. DICLOFENAC SODIUM [Concomitant]
     Dosage: UNK UNK, UNK
  5. ENBREL [Suspect]
     Indication: JUVENILE ARTHRITIS
     Dosage: 50 MG, 2 TIMES/WK
     Dates: start: 20090501
  6. LANSOPRAZOLE [Concomitant]
     Dosage: UNK UNK, UNK
  7. TOPIRAMATE [Concomitant]
     Dosage: UNK UNK, UNK
  8. FEXOFENADINE HCL [Concomitant]
     Dosage: UNK UNK, UNK

REACTIONS (1)
  - OVULATION DISORDER [None]
